FAERS Safety Report 6098722-2 (Version None)
Quarter: 2009Q1

REPORT INFORMATION
  Report Type: 
  Country: None (occurrence: None)
  Receive Date: 20090302
  Receipt Date: 20090219
  Transmission Date: 20090719
  Serious: Yes (Death, Hospitalization)
  Sender: FDA-Public Use
  Company Number: FR-AMGEN-QUU334990

PATIENT
  Sex: Male

DRUGS (4)
  1. NEULASTA [Suspect]
     Indication: CHEMOTHERAPY
     Route: 065
     Dates: start: 20071215, end: 20071217
  2. TAXOTERE [Concomitant]
     Dates: start: 20071210, end: 20071210
  3. CISPLATIN [Concomitant]
     Dates: start: 20071210, end: 20071212
  4. FLUOROURACIL [Concomitant]
     Dates: start: 20071210, end: 20071214

REACTIONS (3)
  - COLITIS [None]
  - FEBRILE BONE MARROW APLASIA [None]
  - MULTI-ORGAN FAILURE [None]
